FAERS Safety Report 25435675 (Version 4)
Quarter: 2025Q4

REPORT INFORMATION
  Report Type: Spontaneous
  Country: US (occurrence: US)
  Receive Date: 20250613
  Receipt Date: 20251203
  Transmission Date: 20260117
  Serious: Yes (Other)
  Sender: PFIZER
  Company Number: US-PFIZER INC-PV202500067806

PATIENT
  Age: 37 Year
  Sex: Female

DRUGS (7)
  1. DOCETAXEL [Suspect]
     Active Substance: DOCETAXEL
     Indication: Hormone receptor positive HER2 negative breast cancer
     Dosage: 128 MG, SINGLE (C1, EVERY 3 WEEKS FOR TOTAL OF 6 CYCLES)
     Dates: start: 20140416, end: 20140416
  2. DOCETAXEL [Suspect]
     Active Substance: DOCETAXEL
     Dosage: 128 MG, SINGLE (C2, EVERY 3 WEEKS FOR TOTAL OF 6 CYCLES)
     Dates: start: 20140507, end: 20140507
  3. DOCETAXEL [Suspect]
     Active Substance: DOCETAXEL
     Dosage: 128 MG, SINGLE (C3, EVERY 3 WEEKS FOR TOTAL OF 6 CYCLES)
     Dates: start: 20140528, end: 20140528
  4. DOCETAXEL [Suspect]
     Active Substance: DOCETAXEL
     Dosage: 128 MG, SINGLE (C4, EVERY 3 WEEKS FOR TOTAL OF 6 CYCLES)
     Dates: start: 20140618, end: 20140618
  5. DOCETAXEL [Suspect]
     Active Substance: DOCETAXEL
     Dosage: 128 MG, SINGLE (C5, EVERY 3 WEEKS FOR TOTAL OF 6 CYCLES)
     Dates: start: 20140709, end: 20140709
  6. DOCETAXEL [Suspect]
     Active Substance: DOCETAXEL
     Dosage: 128 MG, SINGLE (C6, EVERY 3 WEEKS FOR TOTAL OF 6 CYCLES)
     Dates: start: 20140730, end: 20140730
  7. CYTOXAN [Concomitant]
     Active Substance: CYCLOPHOSPHAMIDE
     Indication: Chemotherapy
     Dosage: UNK

REACTIONS (5)
  - Lacrimal structure injury [Unknown]
  - Lacrimation increased [Not Recovered/Not Resolved]
  - Dacryostenosis acquired [Not Recovered/Not Resolved]
  - Anxiety [Not Recovered/Not Resolved]
  - Depression [Not Recovered/Not Resolved]

NARRATIVE: CASE EVENT DATE: 20140101
